FAERS Safety Report 8976110 (Version 1)
Quarter: 2012Q4

REPORT INFORMATION
  Report Type: 
  Country: US (occurrence: US)
  Receive Date: 20121219
  Receipt Date: 20121219
  Transmission Date: 20130627
  Serious: No
  Sender: FDA-Public Use
  Company Number: US-AMGEN-USASP2012066546

PATIENT
  Age: 75 Year
  Sex: Female

DRUGS (6)
  1. PROLIA [Suspect]
     Indication: OSTEOPOROSIS POSTMENOPAUSAL
     Dosage: UNK
     Dates: start: 20120203
  2. LIPITOR [Concomitant]
     Dosage: UNK
  3. IMITREX                            /01044801/ [Concomitant]
     Dosage: UNK
  4. LOPRESSOR [Concomitant]
     Dosage: UNK
  5. FIORICET [Concomitant]
  6. ATIVAN [Concomitant]
     Dosage: UNK

REACTIONS (7)
  - Urinary tract infection [Recovered/Resolved]
  - Herpes zoster [Not Recovered/Not Resolved]
  - Dysuria [Recovered/Resolved]
  - Diverticulitis [Recovered/Resolved]
  - Migraine [Unknown]
  - Weight decreased [Unknown]
  - Rash [Recovered/Resolved]
